FAERS Safety Report 9092614 (Version 1)
Quarter: 2013Q1

REPORT INFORMATION
  Report Type: Spontaneous
  Country: US (occurrence: US)
  Receive Date: 20130131
  Receipt Date: 20130131
  Transmission Date: 20140127
  Serious: Yes (Other)
  Sender: FDA-Public Use
  Company Number: US-SANOFI-AVENTIS-2013SA007769

PATIENT
  Sex: Male

DRUGS (4)
  1. LANTUS [Suspect]
     Route: 058
  2. GLYBURIDE [Suspect]
     Route: 065
  3. BYETTA [Suspect]
     Route: 065
  4. HUMALOG [Suspect]
     Route: 065

REACTIONS (1)
  - Renal failure [Unknown]
